FAERS Safety Report 8719543 (Version 2)
Quarter: 2012Q4

REPORT INFORMATION
  Report Type: 
  Country: US (occurrence: US)
  Receive Date: 20120813
  Receipt Date: 20120920
  Transmission Date: 20130627
  Serious: No
  Sender: FDA-Public Use
  Company Number: US-PFIZER INC-2012194285

PATIENT
  Age: 85 Year
  Sex: Female
  Weight: 68.03 kg

DRUGS (9)
  1. LYRICA [Suspect]
     Indication: MUSCLE SPASMS
     Dosage: 75 mg, 1x/day
     Dates: start: 201208
  2. LYRICA [Suspect]
     Indication: HERPES ZOSTER
  3. LYRICA [Suspect]
     Indication: SCRATCH
  4. LYRICA [Suspect]
     Indication: NEUROPATHY PERIPHERAL
  5. LASIX [Concomitant]
     Dosage: 40 mg, daily
  6. TOPROL XL [Concomitant]
     Indication: DIABETES MELLITUS
     Dosage: 50 mg, daily
  7. PREVACID [Concomitant]
     Indication: GASTROOESOPHAGEAL REFLUX DISEASE
     Dosage: 30 mg, daily
  8. VITAMIN B6 [Concomitant]
     Dosage: 50 mg, daily
  9. POTASSIUM [Concomitant]
     Dosage: 20 mEq, daily

REACTIONS (2)
  - Hair colour changes [Not Recovered/Not Resolved]
  - Off label use [Not Recovered/Not Resolved]
